FAERS Safety Report 18267708 (Version 1)
Quarter: 2020Q3

REPORT INFORMATION
  Report Type: Spontaneous
  Country: FR (occurrence: FR)
  Receive Date: 20200915
  Receipt Date: 20200915
  Transmission Date: 20201103
  Serious: Yes (Disabling)
  Sender: FDA-Public Use
  Company Number: FR-REGENERON PHARMACEUTICALS, INC.-2020-75538

PATIENT

DRUGS (3)
  1. LUMIRELAX                          /01313101/ [Concomitant]
     Active Substance: METHOCARBAMOL\METHYL NICOTINATE
  2. EZETIMIBE;ROSUVASTATIN [Concomitant]
     Active Substance: EZETIMIBE\ROSUVASTATIN
     Dosage: 20MG/10MG
  3. PRALUENT [Suspect]
     Active Substance: ALIROCUMAB
     Dosage: UNK UNK, QOW
     Dates: start: 20200501

REACTIONS (4)
  - Tendon discomfort [Unknown]
  - Gait disturbance [Unknown]
  - Condition aggravated [Unknown]
  - Middle insomnia [Unknown]

NARRATIVE: CASE EVENT DATE: 2020
